FAERS Safety Report 4542506-0 (Version None)
Quarter: 2004Q4

REPORT INFORMATION
  Report Type: 
  Country: None (occurrence: None)
  Receive Date: 20041227
  Receipt Date: 20041214
  Transmission Date: 20050328
  Serious: Yes (Disabling, Other)
  Sender: FDA-Public Use
  Company Number: 2004225271US

PATIENT
  Sex: Male

DRUGS (2)
  1. XANAX [Suspect]
     Indication: PANIC ATTACK
     Dates: start: 19850101
  2. PHENELZINE SULFATE (PHENELZINE SULFATE) [Suspect]
     Indication: ILL-DEFINED DISORDER

REACTIONS (16)
  - ALCOHOL USE [None]
  - AMNESIA [None]
  - BACK INJURY [None]
  - CONFUSIONAL STATE [None]
  - DEPRESSION [None]
  - FALL [None]
  - FATIGUE [None]
  - MEDICATION ERROR [None]
  - MENTAL DISORDER [None]
  - NEPHROLITHIASIS [None]
  - NOCTURIA [None]
  - PANIC DISORDER [None]
  - SELF-MEDICATION [None]
  - SEXUAL DYSFUNCTION [None]
  - SLEEP APNOEA SYNDROME [None]
  - SLEEP ATTACKS [None]
